FAERS Safety Report 19071969 (Version 6)
Quarter: 2021Q3

REPORT INFORMATION
  Report Type: Report from Study
  Country: AT (occurrence: AT)
  Receive Date: 20210330
  Receipt Date: 20210716
  Transmission Date: 20211014
  Serious: Yes (Hospitalization)
  Sender: FDA-Public Use
  Company Number: AT-ROCHE-2794684

PATIENT
  Age: 71 Year
  Sex: Male
  Weight: 78.5 kg

DRUGS (18)
  1. MOSUNETUZUMAB. [Suspect]
     Active Substance: MOSUNETUZUMAB
     Indication: B-CELL LYMPHOMA
     Dosage: DATE OF MOST RECENT DOSE OF MOSUNETUZUMAB (2 MG) STUDY DRUG PRIOR TO SAE: 12/MAR/2021
     Route: 042
     Dates: start: 20210305
  2. RAMIPRIL. [Concomitant]
     Active Substance: RAMIPRIL
     Route: 048
     Dates: start: 202103
  3. ZARZIO [Concomitant]
     Active Substance: FILGRASTIM
     Route: 058
     Dates: start: 20210308, end: 20210312
  4. ALLOPURINOL. [Concomitant]
     Active Substance: ALLOPURINOL
     Route: 048
     Dates: start: 202103
  5. PREDNISONE. [Suspect]
     Active Substance: PREDNISONE
     Indication: B-CELL LYMPHOMA
     Dosage: DATE OF MOST RECENT DOSE OF STUDY DRUG PREDNISONE PRIOR TO SAE: 08/MAR/2021 (ROA CAN BE EITHER IV OR
     Route: 065
     Dates: start: 20210304
  6. RAPIFEN (AUSTRIA) [Concomitant]
     Dosage: 1 AMPULE
     Route: 042
     Dates: start: 20210303, end: 20210303
  7. FASTURTEC [Concomitant]
     Active Substance: RASBURICASE
     Route: 042
     Dates: start: 20210302, end: 20210302
  8. CYCLOPHOSPHAMIDE. [Suspect]
     Active Substance: CYCLOPHOSPHAMIDE
     Indication: B-CELL LYMPHOMA
     Dosage: DATE OF MOST RECENT DOSE OF STUDY DRUG CYCLOPHOSPHAMIDE PRIOR TO SAE: 04/MAR/2021
     Route: 042
     Dates: start: 20210304
  9. DOXORUBICIN [Suspect]
     Active Substance: DOXORUBICIN
     Indication: B-CELL LYMPHOMA
     Dosage: DATE OF MOST RECENT DOSE OF STUDY DRUG DOXORUBICIN PRIOR TO SAE: 04/MAR/2021
     Route: 042
     Dates: start: 20210304
  10. FRAGMIN [Concomitant]
     Active Substance: DALTEPARIN SODIUM
     Route: 058
     Dates: start: 20210302, end: 20210304
  11. SYMBICORT [Concomitant]
     Active Substance: BUDESONIDE\FORMOTEROL FUMARATE DIHYDRATE
     Dosage: 1 PUFF
     Route: 055
  12. SERTRALIN [Concomitant]
     Active Substance: SERTRALINE HYDROCHLORIDE
     Route: 048
     Dates: start: 20210319
  13. POLATUZUMAB VEDOTIN. [Suspect]
     Active Substance: POLATUZUMAB VEDOTIN
     Indication: B-CELL LYMPHOMA
     Dosage: DATE OF MOST RECENT DOSE OF STUDY DRUG POLATUZUMAB VEDOTIN PRIOR TO SAE: 04/MAR/2021
     Route: 042
     Dates: start: 20210304
  14. TAZONAM [Concomitant]
     Active Substance: TAZOBACTAM
     Route: 042
     Dates: start: 20210306, end: 20210311
  15. UNASYN [Concomitant]
     Active Substance: AMPICILLIN SODIUM\SULBACTAM SODIUM
     Route: 042
     Dates: start: 20210319, end: 20210324
  16. EBRANTIL [Concomitant]
     Active Substance: URAPIDIL
     Dosage: 0.5 AMPULE
     Route: 042
     Dates: start: 20210303, end: 20210303
  17. FRAGMIN [Concomitant]
     Active Substance: DALTEPARIN SODIUM
     Route: 058
     Dates: start: 20210305, end: 20210314
  18. PERFALGAN [Concomitant]
     Active Substance: ACETAMINOPHEN
     Route: 042
     Dates: start: 20210305, end: 20210306

REACTIONS (1)
  - Infection [Recovered/Resolved]

NARRATIVE: CASE EVENT DATE: 20210319
